FAERS Safety Report 8857654 (Version 1)
Quarter: 2012Q4

REPORT INFORMATION
  Report Type: Report from Study
  Country: JP (occurrence: JP)
  Receive Date: 20121024
  Receipt Date: 20121024
  Transmission Date: 20130627
  Serious: Yes (Other)
  Sender: FDA-Public Use
  Company Number: JP-OTSUKA-JP-2012-16511

PATIENT
  Age: 92 Year
  Sex: Female
  Weight: 30 kg

DRUGS (6)
  1. SAMSCA [Suspect]
     Indication: FLUID RETENTION
     Dosage: 7.5 Mg milligram(s), qam
     Route: 048
     Dates: start: 20120809
  2. TANATRIL [Concomitant]
     Indication: CARDIAC FAILURE
     Dosage: 5 Mg milligram(s), daily dose
     Route: 048
  3. ALDACTONE A [Concomitant]
     Indication: CARDIAC FAILURE
     Dosage: 25 Mg milligram(s), daily dose
     Route: 048
  4. PIMOBENDAN [Concomitant]
     Indication: CARDIAC FAILURE
     Dosage: 2.5 Mg milligram(s), daily dose
     Route: 048
  5. WARFARIN [Concomitant]
     Indication: PROPHYLAXIS
     Dosage: 0.5 Mg milligram(s), daily dose
     Route: 048
  6. PARIET [Concomitant]
     Indication: PROPHYLAXIS
     Dosage: 10 Mg milligram(s), daily dose
     Route: 048

REACTIONS (1)
  - Blood urea increased [Not Recovered/Not Resolved]
